FAERS Safety Report 7330801-1 (Version None)
Quarter: 2011Q1

REPORT INFORMATION
  Report Type: 
  Country: None (occurrence: None)
  Receive Date: 20110304
  Receipt Date: 20110301
  Transmission Date: 20110831
  Serious: No
  Sender: FDA-Public Use
  Company Number: US-PFIZER INC-2011044597

PATIENT
  Sex: Female

DRUGS (3)
  1. CRESTOR [Suspect]
     Dosage: UNK
  2. LIPITOR [Suspect]
     Dosage: UNK
  3. SIMVASTATIN [Suspect]
     Dosage: 20 MG, 1X/DAY
     Route: 048

REACTIONS (10)
  - MUSCLE SPASMS [None]
  - INITIAL INSOMNIA [None]
  - TENDONITIS [None]
  - MYALGIA [None]
  - BACK PAIN [None]
  - MUSCULOSKELETAL STIFFNESS [None]
  - ASTHENIA [None]
  - WEIGHT INCREASED [None]
  - JOINT STIFFNESS [None]
  - ARTHRALGIA [None]
